FAERS Safety Report 7374483-1 (Version None)
Quarter: 2011Q1

REPORT INFORMATION
  Report Type: 
  Country: None (occurrence: None)
  Receive Date: 20110325
  Receipt Date: 20110111
  Transmission Date: 20110831
  Serious: No
  Sender: FDA-Public Use
  Company Number: US-MYLANLABS-2011S1000769

PATIENT
  Age: 86 Year
  Sex: Female

DRUGS (8)
  1. FENTANYL-100 [Suspect]
     Indication: HIP FRACTURE
     Dosage: Q72H
     Route: 062
  2. FENTANYL-100 [Suspect]
     Dosage: Q72H
     Route: 062
  3. FENTANYL-100 [Suspect]
     Dosage: Q72H
     Route: 062
  4. FENTANYL-100 [Suspect]
     Dosage: Q72H
     Route: 062
  5. FENTANYL-100 [Suspect]
     Indication: ARTHRALGIA
     Dosage: Q72H
     Route: 062
  6. FENTANYL-100 [Suspect]
     Indication: CEREBROVASCULAR ACCIDENT
     Dosage: Q72H
     Route: 062
  7. FENTANYL-100 [Suspect]
     Indication: SCOLIOSIS
     Dosage: Q72H
     Route: 062
  8. FENTANYL-100 [Suspect]
     Dosage: Q72H
     Route: 062

REACTIONS (3)
  - DRUG EFFECT DECREASED [None]
  - PAIN [None]
  - DRUG WITHDRAWAL SYNDROME [None]
